FAERS Safety Report 8413785-4 (Version None)
Quarter: 2012Q2

REPORT INFORMATION
  Report Type: 
  Country: None (occurrence: None)
  Receive Date: 20120605
  Receipt Date: 20120528
  Transmission Date: 20120825
  Serious: Yes (Hospitalization, Other)
  Sender: FDA-Public Use
  Company Number: TH-ROCHE-1061925

PATIENT
  Sex: Female
  Weight: 53 kg

DRUGS (9)
  1. MEROPENEM [Concomitant]
     Dates: start: 20120416, end: 20120429
  2. PLAVIX [Concomitant]
     Dates: start: 20120411
  3. AMIODARONE HCL [Concomitant]
     Dates: start: 20120502
  4. ACTEMRA [Suspect]
     Indication: RHEUMATOID ARTHRITIS
     Dosage: LAST DOSE PRIOR TO THE EVENT: 06/DEC/2011
     Route: 042
     Dates: start: 20091224
  5. CARVEDILOL [Concomitant]
     Dates: start: 20120410, end: 20120425
  6. MEROPENEM [Concomitant]
     Dates: start: 20120503, end: 20120509
  7. PLACEBO [Suspect]
     Indication: RHEUMATOID ARTHRITIS
  8. AMIODARONE HCL [Concomitant]
     Dates: start: 20120418, end: 20120501
  9. ASPIRIN [Concomitant]
     Dates: start: 20120406

REACTIONS (4)
  - ACUTE MYOCARDIAL INFARCTION [None]
  - ATRIAL FIBRILLATION [None]
  - PNEUMONIA [None]
  - ISCHAEMIC CEREBRAL INFARCTION [None]
